FAERS Safety Report 8621746 (Version 2)
Quarter: 2012Q4

REPORT INFORMATION
  Report Type: 
  Country: US (occurrence: US)
  Receive Date: 20120619
  Receipt Date: 20121026
  Transmission Date: 20130627
  Serious: Yes (Hospitalization, Other)
  Sender: FDA-Public Use
  Company Number: US-BAYER-2012-058291

PATIENT
  Age: 33 Year
  Sex: Female
  Weight: 115.19 kg

DRUGS (20)
  1. OCELLA [Suspect]
     Indication: CONTRACEPTION
     Dosage: UNK
     Dates: start: 200904, end: 201101
  2. OCELLA [Suspect]
     Indication: ACNE
  3. ZARAH [Suspect]
     Indication: CONTRACEPTION
     Dosage: UNK
     Dates: start: 201011, end: 201203
  4. ZARAH [Suspect]
     Indication: ACNE
  5. ZARAH [Suspect]
     Indication: MENSTRUAL CYCLE MANAGEMENT
  6. ALBUTEROL [Concomitant]
     Indication: ASTHMA
     Dosage: UNK
     Dates: start: 200703
  7. VENTOLIN [Concomitant]
     Indication: ASTHMA
     Dosage: UNK
     Dates: start: 200703
  8. ADVAIR [Concomitant]
     Indication: ASTHMA
     Dosage: UNK
     Dates: start: 200703
  9. IPRATROPIUM [Concomitant]
     Indication: ASTHMA
     Dosage: UNK
     Dates: start: 200703
  10. PROAIR [Concomitant]
     Indication: ASTHMA
     Dosage: UNK
     Dates: start: 200703
  11. OXYCODONE [Concomitant]
     Indication: PAIN
     Dosage: 15 mg, UNK
     Dates: start: 200709
  12. ZOLPIDEM [Concomitant]
     Indication: INSOMNIA
     Dosage: UNK
     Dates: start: 200909
  13. CLARITHROMYCIN [Concomitant]
  14. CHERATUSSIN SYRUP [Concomitant]
  15. OXYCONTIN [Concomitant]
     Indication: CHRONIC BACK PAIN
     Dosage: 20 mg, UNK
  16. CYMBALTA [Concomitant]
     Indication: DEPRESSION
     Dosage: 30 mg, UNK
     Route: 048
  17. ALPRAZOLAM [Concomitant]
     Indication: ANXIETY
     Dosage: 0.25 mg, UNK
     Route: 048
  18. ALPRAZOLAM [Concomitant]
     Indication: DEPRESSION
  19. IBUPROFEN [Concomitant]
     Dosage: 800 mg, UNK
     Route: 048
  20. EPIPEN [Concomitant]
     Indication: BEE STING
     Dosage: UNK UNK, PRN

REACTIONS (6)
  - Cholecystitis [None]
  - Pregnancy on oral contraceptive [None]
  - Injury [None]
  - Pain [None]
  - Emotional distress [None]
  - Abdominal pain upper [None]
